FAERS Safety Report 6238025-6 (Version None)
Quarter: 2009Q2

REPORT INFORMATION
  Report Type: 
  Country: None (occurrence: None)
  Receive Date: 20090622
  Receipt Date: 20090617
  Transmission Date: 20091009
  Serious: No
  Sender: FDA-Public Use
  Company Number: US-B.I. PHARMACEUTICALS,INC./RIDGEFIELD-2009-BP-06060BP

PATIENT
  Sex: Female

DRUGS (20)
  1. SPIRIVA [Suspect]
     Indication: CHRONIC OBSTRUCTIVE PULMONARY DISEASE
     Dosage: 18 MCG
     Route: 055
     Dates: start: 20090513, end: 20090514
  2. SPIRIVA [Suspect]
     Indication: ASTHMA
  3. SPIRIVA [Suspect]
     Indication: EMPHYSEMA
  4. SPIRIVA [Suspect]
     Indication: ASBESTOSIS
  5. SPIRIVA [Suspect]
     Indication: BRONCHITIS CHRONIC
  6. SPIRIVA [Suspect]
     Indication: BRONCHIECTASIS
  7. THEOPHYLLINE [Concomitant]
     Indication: LUNG DISORDER
     Dates: start: 19270101
  8. ALDACTONE [Concomitant]
     Indication: HYPERTENSION
  9. LISINOPRIL [Concomitant]
     Indication: HYPERTENSION
  10. SYNTHROID [Concomitant]
     Indication: HYPOTHYROIDISM
     Dates: start: 19270101
  11. MUCINEX [Concomitant]
     Indication: LUNG DISORDER
  12. PHENERGAN [Concomitant]
     Indication: NAUSEA
     Dates: start: 19270101
  13. PHENERGAN [Concomitant]
     Indication: VOMITING
  14. BENADRYL [Concomitant]
     Indication: SEASONAL ALLERGY
     Dates: start: 19280101
  15. ALBUTEROL [Concomitant]
  16. NEURONTIN [Concomitant]
  17. BENADRYL CALTRATE 600 WITH D [Concomitant]
  18. CLARITIN [Concomitant]
  19. TYLENOL (CAPLET) [Concomitant]
  20. ATROVENT [Concomitant]

REACTIONS (7)
  - ADVERSE REACTION [None]
  - ASTHENIA [None]
  - COUGH [None]
  - DISORIENTATION [None]
  - DIZZINESS [None]
  - DRY MOUTH [None]
  - MUSCLE SPASMS [None]
